FAERS Safety Report 5930129-8 (Version None)
Quarter: 2008Q4

REPORT INFORMATION
  Report Type: 
  Country: None (occurrence: None)
  Receive Date: 20081009
  Receipt Date: 20080418
  Transmission Date: 20090506
  Serious: Yes (Other)
  Sender: FDA-Public Use
  Company Number: PHEH2008US01615

PATIENT
  Age: 46 Year
  Sex: Female

DRUGS (11)
  1. ZOMETA [Suspect]
     Indication: BREAST CANCER METASTATIC
     Dosage: 4 MG : 4 MG, ONCE/SINGLE
     Dates: start: 20020601, end: 20070401
  2. ZOMETA [Suspect]
     Indication: BREAST CANCER METASTATIC
     Dosage: 4 MG : 4 MG, ONCE/SINGLE
     Dates: start: 20071121, end: 20071121
  3. XELODA [Concomitant]
  4. AVASTAIN (BEVACIZUMAB) [Concomitant]
  5. ABRAXANE [Concomitant]
  6. NAVELBINE [Concomitant]
  7. DEXAMETHASONE TAB [Concomitant]
  8. CARBOPLATIN [Concomitant]
  9. ETOPOSIDE [Concomitant]
  10. DOXIL [Concomitant]
  11. ARIMIDEX [Concomitant]

REACTIONS (3)
  - BONE DISORDER [None]
  - ORAL DISORDER [None]
  - OSTEONECROSIS [None]
